FAERS Safety Report 24909429 (Version 1)
Quarter: 2025Q1

REPORT INFORMATION
  Report Type: Report from Study
  Country: US (occurrence: US)
  Receive Date: 20250131
  Receipt Date: 20250131
  Transmission Date: 20250409
  Serious: Yes (Other)
  Sender: RANBAXY
  Company Number: US-SUN PHARMACEUTICAL INDUSTRIES LTD-2025R1-491183

PATIENT
  Age: 31 Year
  Sex: Female

DRUGS (4)
  1. BUPRENORPHINE [Suspect]
     Active Substance: BUPRENORPHINE
     Indication: Drug use disorder
     Route: 048
  2. AMPHETAMINE [Suspect]
     Active Substance: AMPHETAMINE
     Indication: Drug use disorder
     Route: 065
  3. COCAINE [Suspect]
     Active Substance: COCAINE
     Indication: Drug use disorder
     Route: 065
  4. NICOTINE [Suspect]
     Active Substance: NICOTINE
     Indication: Drug use disorder
     Route: 065

REACTIONS (4)
  - Drug screen positive [Unknown]
  - Toxicity to various agents [Unknown]
  - Exposure during pregnancy [Unknown]
  - Drug use disorder [Unknown]
